FAERS Safety Report 10747411 (Version 1)
Quarter: 2015Q1

REPORT INFORMATION
  Report Type: Spontaneous
  Country: US (occurrence: None)
  Receive Date: 20150128
  Receipt Date: 20150128
  Transmission Date: 20150721
  Serious: Yes (Death)
  Sender: FDA-Public Use
  Company Number: None

PATIENT
  Age: 29 Year
  Sex: Female

DRUGS (6)
  1. CODEINE [Concomitant]
     Active Substance: CODEINE
  2. GUAIFENESIN. [Concomitant]
     Active Substance: GUAIFENESIN
  3. CLOZAPINE 100 MG TABLETS [Suspect]
     Active Substance: CLOZAPINE
     Indication: SCHIZOAFFECTIVE DISORDER
     Route: 048
  4. CLONAZEPAM. [Concomitant]
     Active Substance: CLONAZEPAM
  5. HALDOL [Concomitant]
     Active Substance: HALOPERIDOL
  6. CLOZAPINE 100 MG TABLETS [Suspect]
     Active Substance: CLOZAPINE
     Indication: CRANIOCEREBRAL INJURY
     Route: 048

REACTIONS (3)
  - Bronchitis [None]
  - Toxicity to various agents [None]
  - Sinusitis [None]

NARRATIVE: CASE EVENT DATE: 20130407
